FAERS Safety Report 10668819 (Version 2)
Quarter: 2015Q2

REPORT INFORMATION
  Report Type: Spontaneous
  Country: US (occurrence: US)
  Receive Date: 20141222
  Receipt Date: 20150521
  Transmission Date: 20150821
  Serious: No
  Sender: FDA-Public Use
  Company Number: US-PFIZER INC-2014348536

PATIENT
  Age: 65 Year
  Sex: Female
  Weight: 59 kg

DRUGS (3)
  1. ADVIL PM [Suspect]
     Active Substance: DIPHENHYDRAMINE CITRATE\IBUPROFEN
     Indication: ROTATOR CUFF SYNDROME
     Dosage: 0.5 DF, UNK
  2. BENADRYL [Suspect]
     Active Substance: DIPHENHYDRAMINE HYDROCHLORIDE
     Dosage: UNK
  3. ADVIL [Suspect]
     Active Substance: IBUPROFEN
     Dosage: 1 TABLET, TWICE A DAY (1 IN THE MORNING AND 1 AT NIGHT)

REACTIONS (3)
  - Dry eye [Recovering/Resolving]
  - Intentional product misuse [Unknown]
  - Condition aggravated [Unknown]
